FAERS Safety Report 7325252-X (Version None)
Quarter: 2011Q1

REPORT INFORMATION
  Report Type: 
  Country: None (occurrence: None)
  Receive Date: 20110302
  Receipt Date: 20110223
  Transmission Date: 20110831
  Serious: No
  Sender: FDA-Public Use
  Company Number: US-PFIZER INC-2011040372

PATIENT
  Sex: Female
  Weight: 49 kg

DRUGS (7)
  1. TETRACYCLINE HYDROCHLORIDE [Concomitant]
     Dosage: 250 MG, 2X/DAY
  2. EFFEXOR [Suspect]
     Indication: DEPRESSION
     Dosage: 300 MG, 1X/DAY
     Route: 048
  3. WELLBUTRIN [Concomitant]
     Dosage: 150 MG, 1X/DAY
  4. SOLU-MEDROL [Concomitant]
     Dosage: 1 TABLE SPOONFUL DAILY
  5. EFFEXOR [Suspect]
     Indication: ANXIETY
  6. NEURONTIN [Concomitant]
     Indication: MYALGIA
     Dosage: 100 MG, 1X/DAY
  7. TRAZODONE HYDROCHLORIDE [Concomitant]
     Dosage: 200 MG, 1X/DAY

REACTIONS (1)
  - DRUG SCREEN FALSE POSITIVE [None]
